FAERS Safety Report 19096035 (Version 1)
Quarter: 2021Q2

REPORT INFORMATION
  Report Type: Spontaneous
  Country: DE (occurrence: DE)
  Receive Date: 20210406
  Receipt Date: 20210406
  Transmission Date: 20210717
  Serious: Yes (Hospitalization, Other)
  Sender: FDA-Public Use
  Company Number: DE-BAYER-2021-112781

PATIENT
  Age: 41 Year
  Sex: Female

DRUGS (3)
  1. KYLEENA [Suspect]
     Active Substance: LEVONORGESTREL
     Dosage: 17.5 MG PER DAY CONTINUOUSLY
     Route: 015
     Dates: start: 202102
  2. ATORVASTATIN [Concomitant]
     Active Substance: ATORVASTATIN
     Indication: CARDIAC DISORDER
     Dosage: UNK
     Route: 048
  3. BISOPROLOL [Concomitant]
     Active Substance: BISOPROLOL
     Indication: CARDIAC DISORDER
     Dosage: UNK
     Route: 048

REACTIONS (4)
  - Aspartate aminotransferase increased [None]
  - Gamma-glutamyltransferase increased [None]
  - Ascites [None]
  - Alanine aminotransferase increased [None]

NARRATIVE: CASE EVENT DATE: 202103
